FAERS Safety Report 14166017 (Version 1)
Quarter: 2017Q4

REPORT INFORMATION
  Report Type: Spontaneous
  Country: US (occurrence: None)
  Receive Date: 20171106
  Receipt Date: 20171106
  Transmission Date: 20180321
  Serious: No
  Sender: FDA-Public Use
  Company Number: None

PATIENT
  Age: 32 Year
  Sex: Female

DRUGS (1)
  1. REMICADE [Suspect]
     Active Substance: INFLIXIMAB
     Indication: PSORIATIC ARTHROPATHY
     Dosage: 1000MG EVERY 8 WEEKS INTRAVENOUSLY
     Route: 042
     Dates: start: 20170707

REACTIONS (1)
  - Abdominal abscess [None]

NARRATIVE: CASE EVENT DATE: 20171010
